FAERS Safety Report 24041223 (Version 1)
Quarter: 2024Q3

REPORT INFORMATION
  Report Type: Spontaneous
  Country: US (occurrence: US)
  Receive Date: 20240702
  Receipt Date: 20240702
  Transmission Date: 20241016
  Serious: No
  Sender: SAREPTA THERAPEUTICS
  Company Number: US-SAREPTA THERAPEUTICS INC.-SRP2024-004636

PATIENT
  Age: 10 Year
  Sex: Male
  Weight: 19.84 kg

DRUGS (4)
  1. EXONDYS 51 [Suspect]
     Active Substance: ETEPLIRSEN
     Indication: Duchenne muscular dystrophy
     Dosage: 600 MILLIGRAM, WEEKLY
     Route: 042
     Dates: start: 20211202, end: 20240503
  2. EXONDYS 51 [Suspect]
     Active Substance: ETEPLIRSEN
     Dosage: 600 MILLIGRAM, WEEKLY
     Route: 042
     Dates: start: 20240516
  3. PREDNISONE [Concomitant]
     Active Substance: PREDNISONE
     Indication: Product used for unknown indication
     Dosage: 50 MILLIGRAM, TAB TWICE A WEEK (SATURDAY AND SUNDAY)
     Route: 048
     Dates: start: 20230621
  4. LISINOPRIL [Concomitant]
     Active Substance: LISINOPRIL
     Indication: Product used for unknown indication
     Dosage: 2.5 MILLILITER, SOLUTION,1MG/ML
     Route: 048
     Dates: start: 20221011

REACTIONS (1)
  - Pyrexia [Unknown]

NARRATIVE: CASE EVENT DATE: 20240510
